FAERS Safety Report 7333376-6 (Version None)
Quarter: 2011Q1

REPORT INFORMATION
  Report Type: 
  Country: None (occurrence: None)
  Receive Date: 20110304
  Receipt Date: 20110222
  Transmission Date: 20110831
  Serious: Yes (Other)
  Sender: FDA-Public Use
  Company Number: US-MYLANLABS-2011S1000235

PATIENT
  Age: 36 Year
  Sex: Female
  Weight: 74.84 kg

DRUGS (12)
  1. DARVOCET [Concomitant]
     Indication: MIGRAINE
     Dosage: NOT TAKEN ON 02-JAN-2011
  2. PROVENTIL [Concomitant]
     Dates: start: 20110102
  3. ALBUTEROL SULFATE [Suspect]
     Indication: ASTHMA
     Route: 055
     Dates: start: 20110102, end: 20110102
  4. ALBUTEROL SULFATE [Suspect]
     Route: 055
  5. IBUPROFEN [Concomitant]
     Dosage: NOT TAKEN ON 02-JAN-2011
  6. VENTOLIN [Concomitant]
     Dates: start: 20110102
  7. ALBUTEROL SULFATE [Suspect]
     Indication: PNEUMONIA
     Route: 055
     Dates: start: 20110102, end: 20110102
  8. KEFLEX [Concomitant]
     Dosage: ONE DOESE ONLY
     Dates: start: 20110102
  9. FLOVENT [Concomitant]
  10. ALBUTEROL SULFATE [Suspect]
     Route: 055
  11. PROMETHAZINE [Concomitant]
     Dates: start: 20110102
  12. PREDNISONE [Concomitant]

REACTIONS (6)
  - DEHYDRATION [None]
  - HEART RATE INCREASED [None]
  - PAIN IN EXTREMITY [None]
  - PARAESTHESIA [None]
  - TACHYCARDIA [None]
  - DYSPNOEA [None]
